FAERS Safety Report 17722359 (Version 4)
Quarter: 2020Q3

REPORT INFORMATION
  Report Type: Spontaneous
  Country: US (occurrence: US)
  Receive Date: 20200429
  Receipt Date: 20200826
  Transmission Date: 20201102
  Serious: No
  Sender: FDA-Public Use
  Company Number: US-PFIZER INC-2020170744

PATIENT
  Age: 74 Year
  Sex: Female
  Weight: 85.73 kg

DRUGS (1)
  1. TOVIAZ [Suspect]
     Active Substance: FESOTERODINE FUMARATE
     Indication: URINARY INCONTINENCE
     Dosage: 8 MG, 1X/DAY (IN THE MORNING)
     Route: 048

REACTIONS (3)
  - Therapeutic product effect delayed [Unknown]
  - Anxiety [Unknown]
  - Product prescribing issue [Unknown]
